FAERS Safety Report 5636917-X (Version None)
Quarter: 2008Q1

REPORT INFORMATION
  Report Type: 
  Country: None (occurrence: None)
  Receive Date: 20080225
  Receipt Date: 20080212
  Transmission Date: 20080703
  Serious: Yes (Other)
  Sender: FDA-Public Use
  Company Number: RO-ROCHE-547083

PATIENT
  Age: 41 Year
  Sex: Male

DRUGS (2)
  1. PEGASYS [Suspect]
     Dosage: FORM VIALS
     Route: 042
     Dates: start: 20080204
  2. COPEGUS [Concomitant]
     Route: 048
     Dates: start: 20080204

REACTIONS (4)
  - CONFUSIONAL STATE [None]
  - CONVULSION [None]
  - PYREXIA [None]
  - RETROGRADE AMNESIA [None]
